FAERS Safety Report 6901408-2 (Version None)
Quarter: 2010Q3

REPORT INFORMATION
  Report Type: 
  Country: None (occurrence: None)
  Receive Date: 20100803
  Receipt Date: 20080617
  Transmission Date: 20110219
  Serious: Yes (Other)
  Sender: FDA-Public Use
  Company Number: US-PFIZER INC-2008007902

PATIENT
  Age: 42 Year
  Sex: Female
  Weight: 65.8 kg

DRUGS (7)
  1. LYRICA [Suspect]
     Indication: MYALGIA
     Dosage: DAILY
     Dates: start: 20070101
  2. LYRICA [Suspect]
     Indication: CARPAL TUNNEL SYNDROME
  3. LYRICA [Suspect]
     Indication: SPINAL FUSION SURGERY
  4. VICODIN [Concomitant]
     Dosage: 5 MG./500MG.
  5. GABAPENTIN [Concomitant]
  6. BACLOFEN [Concomitant]
  7. AMITRIPTYLINE HYDROCHLORIDE [Concomitant]

REACTIONS (5)
  - ALOPECIA [None]
  - DIZZINESS [None]
  - DRUG INEFFECTIVE [None]
  - LOCAL SWELLING [None]
  - PSYCHIATRIC SYMPTOM [None]
